FAERS Safety Report 5414011-0 (Version None)
Quarter: 2007Q3

REPORT INFORMATION
  Report Type: 
  Country: None (occurrence: None)
  Receive Date: 20070814
  Receipt Date: 20070804
  Transmission Date: 20080115
  Serious: Yes (Hospitalization)
  Sender: FDA-Public Use
  Company Number: US-ELI_LILLY_AND_COMPANY-US200708001380

PATIENT
  Age: 59 Year
  Sex: Male
  Weight: 137 kg

DRUGS (5)
  1. EXENATIDE [Suspect]
     Indication: TYPE 2 DIABETES MELLITUS
     Dosage: 5 UG, 2/D
     Route: 058
     Dates: start: 20050101
  2. EXENATIDE [Suspect]
     Dosage: 10 UG, 2/D
     Route: 058
  3. METFORMIN HCL [Concomitant]
  4. INSULIN [Concomitant]
     Dosage: UNK, AS NEEDED
  5. INSULIN [Concomitant]

REACTIONS (4)
  - BLOOD GLUCOSE INCREASED [None]
  - CHEST PAIN [None]
  - DIARRHOEA [None]
  - WEIGHT DECREASED [None]
